FAERS Safety Report 21336263 (Version 1)
Quarter: 2022Q3

REPORT INFORMATION
  Report Type: Spontaneous
  Country: ES (occurrence: ES)
  Receive Date: 20220915
  Receipt Date: 20220915
  Transmission Date: 20221027
  Serious: Yes (Other)
  Sender: FDA-Public Use
  Company Number: ES-AMGEN-ESPSP2021132669

PATIENT
  Age: 79 Year
  Sex: Female

DRUGS (21)
  1. CINACALCET [Suspect]
     Active Substance: CINACALCET
     Indication: Hyperparathyroidism secondary
     Dosage: 30 MILLIGRAM, EVERY OTHER DAY
     Route: 065
     Dates: start: 201806
  2. CINACALCET [Suspect]
     Active Substance: CINACALCET
     Dosage: 90 MILLIGRAM, ONCE A DAY
     Route: 065
     Dates: start: 201912
  3. CINACALCET [Suspect]
     Active Substance: CINACALCET
     Dosage: 90 MILLIGRAMA, ONCE A DAY
     Route: 065
     Dates: start: 202009
  4. CALCIUM CARBONATE [Concomitant]
     Active Substance: CALCIUM CARBONATE
     Indication: Product used for unknown indication
     Dosage: 1000 MILLIGRAM, ONCE A DAY
     Route: 065
  5. CALCIUM CARBONATE [Concomitant]
     Active Substance: CALCIUM CARBONATE
     Dosage: 3000 MILLIGRAM, ONCE A DAY
     Route: 065
  6. CALCIUM CARBONATE [Concomitant]
     Active Substance: CALCIUM CARBONATE
     Dosage: 1500 MILLIGRAM, ONCE A DAY
     Route: 065
     Dates: start: 201806
  7. CALCIUM CARBONATE [Concomitant]
     Active Substance: CALCIUM CARBONATE
     Dosage: 2000 MILLIGRAM, ONCE A DAY
     Route: 065
     Dates: start: 201912
  8. CALCIUM CARBONATE [Concomitant]
     Active Substance: CALCIUM CARBONATE
     Dosage: 2000 MILLIGRAM, ONCE A DAY
     Route: 065
     Dates: start: 202009
  9. PARICALCITOL [Concomitant]
     Active Substance: PARICALCITOL
     Indication: Product used for unknown indication
     Dosage: 10 MICROGRAM, EVERY WEEK
     Route: 065
  10. PARICALCITOL [Concomitant]
     Active Substance: PARICALCITOL
     Dosage: 6 MICROGRAM, EVERY WEEK
     Route: 065
  11. PARICALCITOL [Concomitant]
     Active Substance: PARICALCITOL
     Dosage: 3 MICROGRAM, EVERY WEEK
     Route: 065
     Dates: start: 201806
  12. PARICALCITOL [Concomitant]
     Active Substance: PARICALCITOL
     Dosage: 6 MICROGRAM, EVERY WEEK
     Route: 065
     Dates: start: 201912
  13. PARICALCITOL [Concomitant]
     Active Substance: PARICALCITOL
     Dosage: 15 MICROGRAM, EVERY WEEK
     Route: 065
     Dates: start: 202009
  14. CALCIFEDIOL [Concomitant]
     Active Substance: CALCIFEDIOL
     Indication: Product used for unknown indication
     Dosage: 0.27 MICROGRAM, ONE MONTH(0.266 MICROGRAM, QMO )
     Route: 065
  15. CALCIFEDIOL [Concomitant]
     Active Substance: CALCIFEDIOL
     Dosage: 0.27 MICROGRAM, EVERY WEEK(0.266 MICROGRAM, QWK )
     Route: 065
  16. CALCIFEDIOL [Concomitant]
     Active Substance: CALCIFEDIOL
     Dosage: 0.27 MICROGRAM, TWO WEEK
     Route: 065
  17. CALCIFEDIOL [Concomitant]
     Active Substance: CALCIFEDIOL
     Dosage: 0.26 MICROGRAM, EVERY WEEK
     Route: 065
     Dates: start: 201806
  18. CALCIFEDIOL [Concomitant]
     Active Substance: CALCIFEDIOL
     Dosage: 0.26 MICROGRAM, EVERY WEEK
     Route: 065
     Dates: start: 201912
  19. CALCIFEDIOL [Concomitant]
     Active Substance: CALCIFEDIOL
     Dosage: 0.26 MICROGRAM, ONE MONTH(0.266 MICROGRAM, QMO )
     Route: 065
     Dates: start: 202009
  20. CALCITRIOL [Concomitant]
     Active Substance: CALCITRIOL
     Indication: Product used for unknown indication
     Dosage: 0.5 MILLIGRAM, ONCE A DAY
     Route: 065
  21. CALCITRIOL [Concomitant]
     Active Substance: CALCITRIOL
     Dosage: 0.75 MILLIGRAM, ONCE A DAY
     Route: 065

REACTIONS (3)
  - Blood parathyroid hormone increased [Recovering/Resolving]
  - Off label use [Unknown]
  - Drug ineffective for unapproved indication [Unknown]
